FAERS Safety Report 13689005 (Version 1)
Quarter: 2017Q2

REPORT INFORMATION
  Report Type: Spontaneous
  Country: US (occurrence: US)
  Receive Date: 20170624
  Receipt Date: 20170624
  Transmission Date: 20170830
  Serious: Yes (Life-Threatening, Disabling)
  Sender: FDA-Public Use
  Company Number: None

PATIENT
  Age: 54 Year
  Sex: Female
  Weight: 117 kg

DRUGS (3)
  1. ALPRAZOLAM. [Suspect]
     Active Substance: ALPRAZOLAM
     Indication: HYPERTENSION
     Dosage: ?          OTHER STRENGTH:MG;QUANTITY:1 TABLET(S);?
     Route: 048
     Dates: start: 20100424, end: 20160316
  2. ALPRAZOLAM. [Suspect]
     Active Substance: ALPRAZOLAM
     Indication: ANXIETY
     Dosage: ?          OTHER STRENGTH:MG;QUANTITY:1 TABLET(S);?
     Route: 048
     Dates: start: 20100424, end: 20160316
  3. LISINOPRIL. [Concomitant]
     Active Substance: LISINOPRIL

REACTIONS (18)
  - Renal disorder [None]
  - Dysgeusia [None]
  - Mood altered [None]
  - Suicidal ideation [None]
  - Impaired driving ability [None]
  - Fatigue [None]
  - Mental disorder [None]
  - Personal relationship issue [None]
  - Gout [None]
  - Blood pressure increased [None]
  - Anxiety [None]
  - Impaired work ability [None]
  - Therapy change [None]
  - Skin odour abnormal [None]
  - Tremor [None]
  - Memory impairment [None]
  - Disturbance in attention [None]
  - Cognitive disorder [None]

NARRATIVE: CASE EVENT DATE: 20160302
